FAERS Safety Report 6920209-2 (Version None)
Quarter: 2010Q3

REPORT INFORMATION
  Report Type: 
  Country: None (occurrence: None)
  Receive Date: 20100809
  Receipt Date: 20100720
  Transmission Date: 20110219
  Serious: Yes (Death)
  Sender: FDA-Public Use
  Company Number: CV20100380

PATIENT

DRUGS (1)
  1. PROPOFOL [Suspect]
     Indication: SEDATION

REACTIONS (1)
  - APNOEA [None]
